FAERS Safety Report 20839565 (Version 2)
Quarter: 2022Q2

REPORT INFORMATION
  Report Type: Spontaneous
  Country: US (occurrence: None)
  Receive Date: 20220517
  Receipt Date: 20220617
  Transmission Date: 20220721
  Serious: Yes (Other)
  Sender: FDA-Public Use
  Company Number: US-ROCHE-3091877

PATIENT
  Age: 20 Year
  Sex: Female

DRUGS (1)
  1. OCREVUS [Suspect]
     Active Substance: OCRELIZUMAB
     Indication: Multiple sclerosis
     Dosage: 600MG EVERY 6 MONTHS?300 MG/ML
     Route: 042
     Dates: start: 202201

REACTIONS (5)
  - Multiple sclerosis relapse [Unknown]
  - Arthritis [Unknown]
  - COVID-19 [Unknown]
  - Joint swelling [Unknown]
  - Panniculitis [Unknown]

NARRATIVE: CASE EVENT DATE: 20220301
